FAERS Safety Report 19561195 (Version 2)
Quarter: 2021Q4

REPORT INFORMATION
  Report Type: Spontaneous
  Country: JP (occurrence: JP)
  Receive Date: 20210716
  Receipt Date: 20211028
  Transmission Date: 20220303
  Serious: Yes (Other)
  Sender: FDA-Public Use
  Company Number: JP-GSKJP-JP2021JPN151218AA

PATIENT
  Sex: Male

DRUGS (1)
  1. BENLYSTA [Suspect]
     Active Substance: BELIMUMAB
     Dosage: UNK
     Dates: start: 20190209

REACTIONS (3)
  - Systemic lupus erythematosus [Unknown]
  - Vasculitis [Unknown]
  - Therapeutic product effect incomplete [Unknown]
